FAERS Safety Report 5224228-6 (Version None)
Quarter: 2007Q1

REPORT INFORMATION
  Report Type: 
  Country: None (occurrence: None)
  Receive Date: 20070126
  Receipt Date: 20070115
  Transmission Date: 20070707
  Serious: Yes (Death)
  Sender: FDA-Public Use
  Company Number: 2007JP000222

PATIENT

DRUGS (3)
  1. PROGRAF [Suspect]
     Indication: STEM CELL TRANSPLANT
     Dosage: 0.02 MG/KG, UNKNOWN/D, IV DRIP
     Route: 041
  2. PROGRAF [Suspect]
     Indication: STEM CELL TRANSPLANT
     Dosage: ORAL
     Route: 048
  3. METHORTEXATE (METHORTEXATE SODIUM) FORMULATION UNKNOWN [Concomitant]

REACTIONS (1)
  - INTERSTITIAL LUNG DISEASE [None]
